FAERS Safety Report 4610314-8 (Version None)
Quarter: 2005Q1

REPORT INFORMATION
  Report Type: 
  Country: None (occurrence: None)
  Receive Date: 20050314
  Receipt Date: 20050310
  Transmission Date: 20050727
  Serious: Yes (Hospitalization)
  Sender: FDA-Public Use
  Company Number: ZONI002125

PATIENT
  Age: 71 Year
  Sex: Male
  Weight: 89 kg

DRUGS (3)
  1. ZONEGRAN [Suspect]
     Indication: TREMOR
     Dosage: SEE IMAGE
     Route: 048
     Dates: start: 20041101, end: 20041101
  2. ZONEGRAN [Suspect]
     Indication: TREMOR
     Dosage: SEE IMAGE
     Route: 048
     Dates: start: 20041101
  3. SEVERAL MEDS [Concomitant]

REACTIONS (1)
  - RENAL FAILURE [None]
